FAERS Safety Report 9470196 (Version 1)
Quarter: 2013Q3

REPORT INFORMATION
  Report Type: Spontaneous
  Country: US (occurrence: US)
  Receive Date: 20130822
  Receipt Date: 20130822
  Transmission Date: 20140515
  Serious: No
  Sender: FDA-Public Use
  Company Number: US-MYLANLABS-2013S1010422

PATIENT
  Age: 59 Year
  Sex: Female
  Weight: 68.04 kg

DRUGS (2)
  1. MONTELUKAST SODIUM [Suspect]
     Indication: HYPERSENSITIVITY
     Route: 048
     Dates: start: 20130503, end: 20130504
  2. RANITIDINE [Concomitant]
     Indication: GASTROOESOPHAGEAL REFLUX DISEASE
     Route: 048

REACTIONS (1)
  - Headache [Recovered/Resolved]
